FAERS Safety Report 20623489 (Version 8)
Quarter: 2024Q2

REPORT INFORMATION
  Report Type: Report from Study
  Country: BR (occurrence: BR)
  Receive Date: 20220322
  Receipt Date: 20240502
  Transmission Date: 20240716
  Serious: Yes (Other)
  Sender: FDA-Public Use
  Company Number: BR-NOVARTISPH-NVSC2022BR063633

PATIENT
  Sex: Female
  Weight: 47 kg

DRUGS (4)
  1. KISQALI [Suspect]
     Active Substance: RIBOCICLIB
     Indication: Product used for unknown indication
     Dosage: UNK (EVERY 21 DAYS WITH PAUSE OF 7 DAYS)
     Route: 065
     Dates: start: 202105
  2. KISQALI [Suspect]
     Active Substance: RIBOCICLIB
     Dosage: UNK (DOSE 3 UNIT NOT REPORTED)
     Route: 065
  3. KISQALI [Suspect]
     Active Substance: RIBOCICLIB
     Dosage: UNK
     Route: 065
  4. ZOMETA [Suspect]
     Active Substance: ZOLEDRONIC ACID
     Indication: Osteoporosis
     Dosage: UNK (EVERY 6 MONTHS)
     Route: 065

REACTIONS (30)
  - Metastases to liver [Unknown]
  - Endometrial hyperplasia [Unknown]
  - Vaginal haemorrhage [Recovered/Resolved]
  - Abdominal pain [Recovered/Resolved]
  - Discomfort [Unknown]
  - Uterine polyp [Unknown]
  - Cataract [Unknown]
  - Gastrointestinal disorder [Recovering/Resolving]
  - Hypersensitivity [Not Recovered/Not Resolved]
  - Weight increased [Unknown]
  - Dry skin [Unknown]
  - Anaemia [Recovered/Resolved]
  - Parosmia [Unknown]
  - Menopause [Unknown]
  - Muscle spasms [Unknown]
  - Blood cholesterol abnormal [Unknown]
  - Menstrual disorder [Unknown]
  - Gastrointestinal motility disorder [Recovering/Resolving]
  - Muscle strength abnormal [Unknown]
  - Eye injury [Unknown]
  - Pruritus [Unknown]
  - Constipation [Unknown]
  - Diarrhoea [Recovered/Resolved]
  - Nausea [Unknown]
  - Rash macular [Unknown]
  - Visual impairment [Not Recovered/Not Resolved]
  - Gastrooesophageal reflux disease [Unknown]
  - Frequent bowel movements [Recovering/Resolving]
  - Weight decreased [Unknown]
  - Inappropriate schedule of product administration [Unknown]
